FAERS Safety Report 8886095 (Version 2)
Quarter: 2013Q1

REPORT INFORMATION
  Report Type: Spontaneous
  Country: US (occurrence: US)
  Receive Date: 20121105
  Receipt Date: 20130304
  Transmission Date: 20140127
  Serious: Yes (Other)
  Sender: FDA-Public Use
  Company Number: US-ASTRAZENECA-2012SE82938

PATIENT
  Age: 78 Year
  Sex: Female
  Weight: 71.2 kg

DRUGS (13)
  1. CRESTOR [Suspect]
     Route: 048
  2. TRAZODONE HCL [Concomitant]
     Route: 048
  3. PLAVIX [Concomitant]
     Route: 048
  4. IMDUR [Concomitant]
     Route: 048
  5. TRIAMTERENE HCTZ [Concomitant]
     Dosage: 37.5 MG/25 MG, DAILY
     Route: 048
  6. COREG [Concomitant]
     Route: 048
  7. DIGOXIN [Concomitant]
     Route: 048
  8. LEXAPRO [Concomitant]
     Route: 048
  9. ASPIRIN [Concomitant]
     Route: 048
  10. PROTONIX [Concomitant]
     Route: 048
  11. TEMAZEPAM [Concomitant]
     Route: 048
  12. PHERGAN [Concomitant]
     Route: 048
  13. PRILOSEC [Concomitant]
     Route: 048

REACTIONS (10)
  - Ventricular arrhythmia [Unknown]
  - Coronary artery disease [Unknown]
  - Oedema [Unknown]
  - Hypertension [Unknown]
  - Hypercholesterolaemia [Unknown]
  - Cardiac disorder [Unknown]
  - Influenza [Unknown]
  - Malaise [Unknown]
  - Dizziness [Unknown]
  - Nausea [Unknown]
